FAERS Safety Report 7799650-4 (Version None)
Quarter: 2011Q4

REPORT INFORMATION
  Report Type: 
  Country: None (occurrence: None)
  Receive Date: 20111006
  Receipt Date: 20110929
  Transmission Date: 20120403
  Serious: Yes (Hospitalization)
  Sender: FDA-Public Use
  Company Number: PHHO2011BE15413

PATIENT
  Sex: Female
  Weight: 56 kg

DRUGS (6)
  1. PRAVASTATIN [Suspect]
  2. AFINITOR [Suspect]
     Indication: BREAST CANCER METASTATIC
     Dosage: CODE NOT BROKEN
     Dates: start: 20110701
  3. BLINDED PLACEBO [Suspect]
     Indication: BREAST CANCER METASTATIC
     Dosage: CODE NOT BROKEN
     Dates: start: 20110701
  4. BLINDED NO TREATMENT RECEIVED [Suspect]
     Indication: BREAST CANCER METASTATIC
     Dosage: CODE NOT BROKEN
     Dates: start: 20110701
  5. COMPARATOR TRASTUZUMAB [Suspect]
     Indication: BREAST CANCER METASTATIC
     Dosage: 2 MG/KG, UNK
  6. VINORELBINE [Suspect]
     Indication: BREAST CANCER METASTATIC
     Dosage: 2.5 MG/M2, UNK
     Dates: start: 20110701

REACTIONS (1)
  - CYTOLYTIC HEPATITIS [None]
